FAERS Safety Report 14508889 (Version 1)
Quarter: 2018Q1

REPORT INFORMATION
  Report Type: Report from Study
  Country: AR (occurrence: AR)
  Receive Date: 20180209
  Receipt Date: 20180209
  Transmission Date: 20180509
  Serious: Yes (Other)
  Sender: FDA-Public Use
  Company Number: AR-ACCORD-063281

PATIENT
  Age: 83 Year
  Sex: Male

DRUGS (1)
  1. METHOTREXATE. [Suspect]
     Active Substance: METHOTREXATE
     Indication: PSORIASIS
     Dosage: INCREASE IN DOSE (7.5 MG TO 15 MG)

REACTIONS (2)
  - Ulcer [Recovered/Resolved]
  - Toxicity to various agents [Unknown]
